FAERS Safety Report 6208256-X (Version None)
Quarter: 2009Q2

REPORT INFORMATION
  Report Type: 
  Country: None (occurrence: None)
  Receive Date: 20090522
  Receipt Date: 20090514
  Transmission Date: 20091009
  Serious: Yes (Other)
  Sender: FDA-Public Use
  Company Number: ADE2009-0616

PATIENT
  Sex: Female

DRUGS (1)
  1. FLUOXETINE HCL [Suspect]

REACTIONS (1)
  - OVARIAN CANCER [None]
